FAERS Safety Report 9196078 (Version 1)
Quarter: 2013Q1

REPORT INFORMATION
  Report Type: Spontaneous
  Country: GR (occurrence: GR)
  Receive Date: 20130328
  Receipt Date: 20130328
  Transmission Date: 20140127
  Serious: Yes (Other)
  Sender: FDA-Public Use
  Company Number: GR-AMGEN-GRCSP2013011892

PATIENT
  Age: 80 Year
  Sex: Male

DRUGS (3)
  1. PROLIA [Suspect]
     Indication: PROSTATE CANCER
     Dosage: UNK
  2. EXELON                             /01383201/ [Concomitant]
  3. ATACAND [Concomitant]

REACTIONS (4)
  - Urinary tract infection [Recovered/Resolved]
  - Gingivitis [Not Recovered/Not Resolved]
  - Tooth loss [Not Recovered/Not Resolved]
  - Infection [Unknown]
